FAERS Safety Report 6532123-5 (Version None)
Quarter: 2010Q1

REPORT INFORMATION
  Report Type: 
  Country: None (occurrence: None)
  Receive Date: 20100108
  Receipt Date: 20100104
  Transmission Date: 20100710
  Serious: Yes (Hospitalization)
  Sender: FDA-Public Use
  Company Number: ES-JNJFOC-20100101444

PATIENT
  Age: 40 Year
  Sex: Female

DRUGS (4)
  1. REMICADE [Suspect]
     Indication: CROHN'S DISEASE
     Route: 042
     Dates: start: 20080201, end: 20090116
  2. PARACETAMOL [Suspect]
  3. PARACETAMOL [Suspect]
     Indication: NASOPHARYNGITIS
  4. METHOTREXATE [Suspect]
     Indication: CROHN'S DISEASE

REACTIONS (1)
  - HEPATITIS ACUTE [None]
